FAERS Safety Report 5902650-X (Version None)
Quarter: 2008Q3

REPORT INFORMATION
  Report Type: 
  Country: None (occurrence: None)
  Receive Date: 20080926
  Receipt Date: 20080918
  Transmission Date: 20090109
  Serious: Yes (Other)
  Sender: FDA-Public Use
  Company Number: CHPA2008CA15868

PATIENT
  Age: 42 Year
  Sex: Male
  Weight: 13.6 kg

DRUGS (1)
  1. THRIVE [Suspect]
     Indication: INCORRECT DOSE ADMINISTERED
     Dosage: 2 MG, NEARLY 6 GUMS AT ONCE, ORAL
     Route: 048
     Dates: start: 20080918, end: 20080918

REACTIONS (3)
  - ACCIDENTAL DRUG INTAKE BY CHILD [None]
  - ACCIDENTAL OVERDOSE [None]
  - FALL [None]
